FAERS Safety Report 24325466 (Version 1)
Quarter: 2024Q3

REPORT INFORMATION
  Report Type: Spontaneous
  Country: US (occurrence: US)
  Receive Date: 20240917
  Receipt Date: 20240917
  Transmission Date: 20241016
  Serious: Yes (Other)
  Sender: CHATTEM
  Company Number: US-OPELLA-2024OHG031611

PATIENT
  Sex: Male

DRUGS (2)
  1. ZANTAC [Suspect]
     Active Substance: RANITIDINE HYDROCHLORIDE
     Indication: Dyspepsia
     Dosage: FROM APPROXIMATELY JANUARY 2008 THROUGH APPROXIMATELY OCTOBER 2019
     Dates: start: 200801, end: 201910
  2. ZANTAC [Suspect]
     Active Substance: RANITIDINE HYDROCHLORIDE
     Indication: Gastrooesophageal reflux disease

REACTIONS (3)
  - Gastric cancer [Unknown]
  - Anxiety [Unknown]
  - Injury [Unknown]

NARRATIVE: CASE EVENT DATE: 20210917
